FAERS Safety Report 10308660 (Version 3)
Quarter: 2014Q3

REPORT INFORMATION
  Report Type: Spontaneous
  Country: US (occurrence: US)
  Receive Date: 20140716
  Receipt Date: 20140827
  Transmission Date: 20150326
  Serious: No
  Sender: FDA-Public Use
  Company Number: US-ALEXION-A201304194

PATIENT

DRUGS (13)
  1. CYCLOSPORINE. [Concomitant]
     Active Substance: CYCLOSPORINE
     Indication: IMMUNOSUPPRESSION
     Dosage: 25 MG, UNK
     Route: 048
     Dates: start: 20101215
  2. RED YEAST RICE [Concomitant]
     Active Substance: DIETARY SUPPLEMENT
     Indication: SUPPLEMENTATION THERAPY
     Dosage: 600 MG, UNK
     Route: 065
     Dates: start: 20131130
  3. ZOLOFT [Concomitant]
     Active Substance: SERTRALINE HYDROCHLORIDE
     Indication: PRODUCT USED FOR UNKNOWN INDICATION
     Dosage: 50 MG, QD
     Route: 048
     Dates: start: 20101215
  4. SOLIRIS [Suspect]
     Active Substance: ECULIZUMAB
     Dosage: 900 MG, UNK
     Route: 042
     Dates: start: 20110324
  5. LORAZEPAM. [Concomitant]
     Active Substance: LORAZEPAM
     Indication: ANXIETY
     Dosage: 1 MG, PRN
     Route: 048
     Dates: start: 20101215
  6. VITAMIN E                          /00110501/ [Concomitant]
     Indication: PRODUCT USED FOR UNKNOWN INDICATION
     Dosage: UNK UNK, QD
     Route: 048
     Dates: start: 20101215
  7. VITAMIN D3 [Concomitant]
     Active Substance: CHOLECALCIFEROL
     Indication: PRODUCT USED FOR UNKNOWN INDICATION
     Dosage: UNK UNK, QD
     Route: 048
     Dates: start: 20101215
  8. IRON  TABLET                             /03292501/ [Concomitant]
     Indication: MINERAL SUPPLEMENTATION
     Dosage: 1 TAB, QD
     Route: 065
     Dates: start: 20130101
  9. VITAMIN C [Concomitant]
     Active Substance: ASCORBIC ACID
     Indication: PRODUCT USED FOR UNKNOWN INDICATION
     Dosage: 1 TAB QD
     Route: 065
     Dates: start: 20131202
  10. FOLATE [Concomitant]
     Active Substance: FOLATE SODIUM
     Indication: SUPPLEMENTATION THERAPY
     Dosage: 1 MG, UNK
     Route: 048
     Dates: start: 20101215
  11. SIMVASTATIN. [Concomitant]
     Active Substance: SIMVASTATIN
     Indication: PRODUCT USED FOR UNKNOWN INDICATION
     Dosage: 200 MG, UNK
     Route: 048
     Dates: start: 20101215
  12. SOLIRIS [Suspect]
     Active Substance: ECULIZUMAB
     Indication: PAROXYSMAL NOCTURNAL HAEMOGLOBINURIA
     Dosage: UNK
     Route: 042
     Dates: start: 2011
  13. PURE GREEN COFFEE BEAN [Concomitant]
     Indication: WEIGHT DECREASED
     Dosage: 800 MG, QD
     Route: 065
     Dates: start: 20131120

REACTIONS (10)
  - Haemoglobin decreased [Unknown]
  - Diarrhoea [Recovered/Resolved]
  - Chromaturia [Unknown]
  - Meningitis viral [Not Recovered/Not Resolved]
  - Dehydration [Unknown]
  - Headache [Not Recovered/Not Resolved]
  - Endodontic procedure [Unknown]
  - Migraine [Unknown]
  - Gastric disorder [Unknown]
  - Menstruation irregular [Unknown]

NARRATIVE: CASE EVENT DATE: 20131205
